FAERS Safety Report 9745061 (Version 1)
Quarter: 2013Q4

REPORT INFORMATION
  Report Type: Spontaneous
  Country: CA (occurrence: CA)
  Receive Date: 20131211
  Receipt Date: 20131211
  Transmission Date: 20140711
  Serious: Yes (Hospitalization, Other)
  Sender: FDA-Public Use
  Company Number: CA-ROCHE-1316944

PATIENT
  Age: 53 Year
  Sex: Male

DRUGS (11)
  1. PEGASYS [Suspect]
     Indication: HEPATITIS C
     Route: 065
  2. PEGASYS [Suspect]
     Route: 065
  3. PEGASYS [Suspect]
     Route: 065
  4. PEGASYS [Suspect]
     Route: 065
  5. RIBAVIRIN [Suspect]
     Indication: HEPATITIS C
     Route: 065
  6. RIBAVIRIN [Suspect]
     Route: 065
  7. INCIVEK [Suspect]
     Indication: HEPATITIS C
     Route: 065
  8. 5-ASA [Suspect]
     Indication: PRODUCT USED FOR UNKNOWN INDICATION
     Route: 065
  9. HYDROCHLOROTHIAZIDE [Concomitant]
  10. GABAPENTIN [Concomitant]
  11. NAPROXEN [Concomitant]
     Route: 065

REACTIONS (6)
  - Diarrhoea [Unknown]
  - Depression [Unknown]
  - Dehydration [Unknown]
  - Colitis ischaemic [Unknown]
  - Blood creatinine increased [Unknown]
  - Rash [Unknown]
